FAERS Safety Report 10465789 (Version 2)
Quarter: 2014Q4

REPORT INFORMATION
  Report Type: Report from Study
  Country: BR (occurrence: BR)
  Receive Date: 20140921
  Receipt Date: 20141003
  Transmission Date: 20150528
  Serious: Yes (Hospitalization, Other)
  Sender: FDA-Public Use
  Company Number: PHHY2014BR122205

PATIENT
  Sex: Male

DRUGS (1)
  1. EXELON PATCH [Suspect]
     Active Substance: RIVASTIGMINE
     Indication: DEMENTIA ALZHEIMER^S TYPE
     Dosage: 9.5 MG (PATCH 10 CM2), DAILY
     Route: 062

REACTIONS (10)
  - Clavicle fracture [Unknown]
  - Fall [Unknown]
  - Pyrexia [Unknown]
  - Nervousness [Unknown]
  - Hypokinesia [Unknown]
  - Pneumonia [Unknown]
  - Blood pressure fluctuation [Unknown]
  - Cough [Unknown]
  - Crying [Unknown]
  - Screaming [Unknown]
